FAERS Safety Report 9028728 (Version 2)
Quarter: 2013Q1

REPORT INFORMATION
  Report Type: Spontaneous
  Country: CH (occurrence: CH)
  Receive Date: 20130124
  Receipt Date: 20130130
  Transmission Date: 20140127
  Serious: Yes (Other)
  Sender: FDA-Public Use
  Company Number: CH-ABBOTT-13P-151-1038103-00

PATIENT
  Age: 45 Year
  Sex: Male

DRUGS (1)
  1. KLACID [Suspect]
     Indication: PNEUMONIA BACTERIAL
     Route: 048
     Dates: start: 20121230, end: 20130103

REACTIONS (2)
  - Tendon pain [Not Recovered/Not Resolved]
  - Myalgia [Not Recovered/Not Resolved]
